FAERS Safety Report 5450974-5 (Version None)
Quarter: 2007Q3

REPORT INFORMATION
  Report Type: 
  Country: None (occurrence: None)
  Receive Date: 20070911
  Receipt Date: 20070904
  Transmission Date: 20080115
  Serious: Yes (Hospitalization)
  Sender: FDA-Public Use
  Company Number: TCI2007A01072

PATIENT
  Age: 71 Year
  Sex: Male

DRUGS (11)
  1. LANSOPRAZOLE [Suspect]
     Indication: GASTRIC ULCER
     Dosage: 15 MG (15 MG, 1 IN 1 D) PER ORAL
     Route: 048
     Dates: start: 20060527, end: 20070214
  2. LANSOPRAZOLE [Suspect]
     Indication: REFLUX OESOPHAGITIS
     Dosage: 15 MG (15 MG, 1 IN 1 D) PER ORAL
     Route: 048
     Dates: start: 20060527, end: 20070214
  3. ITOROL [Concomitant]
  4. CARVEDILOL [Concomitant]
  5. MUCOSTA (REBAMIPIDE) [Concomitant]
  6. FOIPAN (CAMOSTAT MESILATE) [Concomitant]
  7. SIGMART (NICORANDIL) [Concomitant]
  8. ALLOPURINOL [Concomitant]
  9. LASIX [Concomitant]
  10. METHYCOBAL (MECOBALAMIN) [Concomitant]
  11. KREMEZIN (CHARCOAL, ACTIVATED) [Concomitant]

REACTIONS (9)
  - ALTERED STATE OF CONSCIOUSNESS [None]
  - CONDITION AGGRAVATED [None]
  - CONTINUOUS HAEMODIAFILTRATION [None]
  - ELECTROENCEPHALOGRAM ABNORMAL [None]
  - HEPATIC ENCEPHALOPATHY [None]
  - HEPATIC FAILURE [None]
  - HYPERAMMONAEMIA [None]
  - HYPOGLYCAEMIA [None]
  - RENAL FAILURE [None]
